FAERS Safety Report 18991227 (Version 1)
Quarter: 2021Q1

REPORT INFORMATION
  Report Type: Spontaneous
  Country: JP (occurrence: JP)
  Receive Date: 20210310
  Receipt Date: 20210310
  Transmission Date: 20210420
  Serious: Yes (Other)
  Sender: FDA-Public Use
  Company Number: JP-JNJFOC-20200136982

PATIENT
  Age: 70 Year
  Sex: Male

DRUGS (3)
  1. RHEUMATREX [Concomitant]
     Active Substance: METHOTREXATE SODIUM
     Dosage: IN THE EVENING
     Route: 048
     Dates: start: 20200130, end: 20200130
  2. SIMPONI [Suspect]
     Active Substance: GOLIMUMAB
     Indication: RHEUMATOID ARTHRITIS
     Route: 058
     Dates: start: 2019
  3. RHEUMATREX [Concomitant]
     Active Substance: METHOTREXATE SODIUM
     Indication: RHEUMATOID ARTHRITIS
     Dosage: IN THE EVENING
     Route: 048
     Dates: start: 20200130, end: 20200130

REACTIONS (8)
  - Chest discomfort [Unknown]
  - Feeling abnormal [Unknown]
  - Administration site pain [Unknown]
  - Weight increased [Unknown]
  - Decreased appetite [Unknown]
  - Blood pressure increased [Unknown]
  - Conjunctivitis [Unknown]
  - Musculoskeletal stiffness [Unknown]

NARRATIVE: CASE EVENT DATE: 202001
